FAERS Safety Report 11648397 (Version 1)
Quarter: 2015Q4

REPORT INFORMATION
  Report Type: Spontaneous
  Country: US (occurrence: US)
  Receive Date: 20151021
  Receipt Date: 20151021
  Transmission Date: 20160304
  Serious: No
  Sender: FDA-Public Use
  Company Number: US-PURDUE-USA-2015-0124093

PATIENT
  Sex: Female

DRUGS (2)
  1. OXYCONTIN [Suspect]
     Active Substance: OXYCODONE HYDROCHLORIDE
     Indication: FIBROMYALGIA
     Dosage: 80 MG, AM
     Route: 048
  2. OXYCONTIN [Suspect]
     Active Substance: OXYCODONE HYDROCHLORIDE
     Indication: RHEUMATOID ARTHRITIS
     Dosage: 60 MG, UNK
     Route: 048

REACTIONS (13)
  - Drug withdrawal syndrome [Unknown]
  - Confusional state [Unknown]
  - Impaired driving ability [Unknown]
  - Pain [Unknown]
  - Diarrhoea [Unknown]
  - Muscle spasms [Unknown]
  - Sneezing [Unknown]
  - Unevaluable event [Unknown]
  - Rash [Unknown]
  - Gait disturbance [Unknown]
  - Hyperhidrosis [Unknown]
  - Malaise [Unknown]
  - Feeling abnormal [Unknown]
